FAERS Safety Report 13464882 (Version 3)
Quarter: 2017Q2

REPORT INFORMATION
  Report Type: Report from Study
  Country: DE (occurrence: DE)
  Receive Date: 20170420
  Receipt Date: 20170511
  Transmission Date: 20170830
  Serious: Yes (Hospitalization)
  Sender: FDA-Public Use
  Company Number: DE-ROCHE-1920704

PATIENT
  Age: 69 Year
  Sex: Male
  Weight: 63 kg

DRUGS (9)
  1. VOMEX (UNK INGREDIENTS) [Concomitant]
     Dosage: AS REQUIRED
     Route: 065
     Dates: start: 20170411
  2. PANTOPRAZOL [Concomitant]
     Active Substance: PANTOPRAZOLE SODIUM
     Route: 065
     Dates: start: 20170413, end: 20170415
  3. VEMURAFENIB [Suspect]
     Active Substance: VEMURAFENIB
     Indication: MALIGNANT MELANOMA
     Dosage: LAST DOSE PRIOR TO EVENT ON 10/APR/2017?THERAPY DISCONTINUED ON 12/APR/2017?THERAPY RE-STARTED ON 02
     Route: 048
     Dates: start: 20170331
  4. LATANOPROST. [Concomitant]
     Active Substance: LATANOPROST
     Route: 065
     Dates: start: 20150115
  5. AZARGA [Concomitant]
     Active Substance: BRINZOLAMIDE\TIMOLOL MALEATE
     Route: 065
     Dates: start: 20150115
  6. IDEOS [Concomitant]
     Active Substance: CALCIUM CARBONATE\CHOLECALCIFEROL
     Route: 065
     Dates: start: 20170413, end: 20170415
  7. COBIMETINIB [Suspect]
     Active Substance: COBIMETINIB
     Indication: MALIGNANT MELANOMA
     Dosage: LAST DOSE PRIOR TO EVENT WAS ON 10/APR/2017?THERAPY DISCONTINUED ON 12/APR/2017?THERAPY RE-STARTED O
     Route: 048
     Dates: start: 20170331
  8. NOVAMINSULFON [Concomitant]
     Active Substance: METAMIZOLE
     Route: 065
     Dates: start: 20100115
  9. IRBESARTAN. [Concomitant]
     Active Substance: IRBESARTAN
     Route: 065
     Dates: start: 20170411

REACTIONS (1)
  - Rash maculo-papular [Recovered/Resolved]

NARRATIVE: CASE EVENT DATE: 20170412
